FAERS Safety Report 7892357-4 (Version None)
Quarter: 2011Q4

REPORT INFORMATION
  Report Type: 
  Country: None (occurrence: None)
  Receive Date: 20111101
  Receipt Date: 20111018
  Transmission Date: 20120403
  Serious: Yes (Death)
  Sender: FDA-Public Use
  Company Number: JPI-P-017773

PATIENT
  Age: 44 Year
  Sex: Female

DRUGS (2)
  1. XYREM [Suspect]
     Indication: PRODUCT USED FOR UNKNOWN INDICATION
     Dosage: 4.5 GM (2.25 GM,2 IN 1 D),ORAL ; (UNSPECIFIED DOSE),ORAL ; 10 GM (5 GM,2 IN 1 D),ORAL
     Route: 048
     Dates: start: 20101008
  2. XYREM [Suspect]
     Indication: PRODUCT USED FOR UNKNOWN INDICATION
     Dosage: 4.5 GM (2.25 GM,2 IN 1 D),ORAL ; (UNSPECIFIED DOSE),ORAL ; 10 GM (5 GM,2 IN 1 D),ORAL
     Route: 048
     Dates: start: 20110722

REACTIONS (1)
  - DEATH [None]
